FAERS Safety Report 4282360-8 (Version None)
Quarter: 2004Q1

REPORT INFORMATION
  Report Type: 
  Country: None (occurrence: None)
  Receive Date: 20040114
  Receipt Date: 20031021
  Transmission Date: 20041129
  Serious: Yes (Other)
  Sender: FDA-Public Use
  Company Number: BIVUS030101

PATIENT
  Age: 45 Year
  Sex: Male

DRUGS (2)
  1. ANGIOMAX [Suspect]
     Indication: ANTICOAGULANT THERAPY
     Dosage: SEE IMAGE
     Dates: start: 20031021, end: 20031021
  2. HEPARIN [Concomitant]

REACTIONS (1)
  - CORONARY ARTERY THROMBOSIS [None]
